FAERS Safety Report 9210253 (Version 4)
Quarter: 2013Q4

REPORT INFORMATION
  Report Type: Report from Study
  Country: ZA (occurrence: ZA)
  Receive Date: 20130404
  Receipt Date: 20131215
  Transmission Date: 20140711
  Serious: Yes (Death, Hospitalization)
  Sender: FDA-Public Use
  Company Number: ZA-ROCHE-1207584

PATIENT
  Sex: Female

DRUGS (7)
  1. MIRCERA [Suspect]
     Indication: NEPHROGENIC ANAEMIA
     Route: 058
     Dates: start: 20120228
  2. MIRCERA [Suspect]
     Route: 058
     Dates: start: 20100223
  3. MIRCERA [Suspect]
     Route: 065
     Dates: start: 20110208
  4. MIRCERA [Suspect]
     Route: 058
     Dates: start: 20120711
  5. MIRCERA [Suspect]
     Route: 058
     Dates: start: 20121127
  6. RECORMON [Concomitant]
     Route: 065
     Dates: start: 20091013
  7. RECORMON [Concomitant]
     Route: 058
     Dates: start: 20131029

REACTIONS (2)
  - Anaemia [Unknown]
  - Death [Fatal]
